FAERS Safety Report 18373505 (Version 7)
Quarter: 2020Q4

REPORT INFORMATION
  Report Type: Spontaneous
  Country: AT (occurrence: AT)
  Receive Date: 20201012
  Receipt Date: 20201222
  Transmission Date: 20210114
  Serious: Yes (Hospitalization)
  Sender: FDA-Public Use
  Company Number: AT-MYLANLABS-2020M1085355

PATIENT
  Age: 48 Year
  Sex: Male

DRUGS (12)
  1. LYRICA [Suspect]
     Active Substance: PREGABALIN
     Indication: ANXIETY DISORDER
     Dosage: 75 MILLIGRAM
     Route: 065
     Dates: end: 202008
  2. LYRICA [Suspect]
     Active Substance: PREGABALIN
     Dosage: 225 MILLIGRAM, QD (1/1/1/0) 0.33 DAY
     Route: 065
     Dates: end: 202008
  3. RIVACOR [Suspect]
     Active Substance: BISOPROLOL FUMARATE
     Indication: BLOOD PRESSURE INCREASED
     Dosage: UNK
  4. EFECTIN ER [Suspect]
     Active Substance: VENLAFAXINE HYDROCHLORIDE
     Dosage: 150 MILLIGRAM, QD (1/0/0/0)
     Route: 065
     Dates: end: 202008
  5. IVACORLAN [Suspect]
     Active Substance: IVABRADINE OXALATE
     Indication: BLOOD PRESSURE INCREASED
     Dosage: 10 MILLIGRAM, QD (1/0/1/0)
     Dates: start: 20200620, end: 20200731
  6. CONCOR COR [Suspect]
     Active Substance: BISOPROLOL FUMARATE
     Indication: HEART RATE INCREASED
     Dosage: 10 MILLIGRAM, BID (1/0/1/0)
     Dates: end: 20200619
  7. BISOPROLOL [Suspect]
     Active Substance: BISOPROLOL
     Indication: HEART RATE INCREASED
  8. CONCOR COR [Suspect]
     Active Substance: BISOPROLOL FUMARATE
     Indication: BLOOD PRESSURE INCREASED
     Dosage: 5 MILLIGRAM
  9. BISOPROLOL [Suspect]
     Active Substance: BISOPROLOL
     Indication: BLOOD PRESSURE INCREASED
  10. MIRTEL                             /01293201/ [Suspect]
     Active Substance: MIRTAZAPINE
     Indication: ANXIETY DISORDER
     Dosage: 30 MILLIGRAM, QD (0/0/0/1)
     Route: 065
     Dates: end: 202006
  11. BISOPROLOL [Suspect]
     Active Substance: BISOPROLOL
     Indication: HYPERTENSION
     Dosage: UNK
  12. EFECTIN ER [Suspect]
     Active Substance: VENLAFAXINE HYDROCHLORIDE
     Indication: ANXIETY DISORDER
     Dosage: 150 MILLIGRAM, QD
     Route: 065
     Dates: end: 202008

REACTIONS (10)
  - Drug eruption [Recovering/Resolving]
  - Skin disorder [Recovering/Resolving]
  - Blister [Recovering/Resolving]
  - Food craving [Unknown]
  - Dermatitis [Recovering/Resolving]
  - Skin exfoliation [Recovering/Resolving]
  - Psoriasis [Recovering/Resolving]
  - Weight increased [Unknown]
  - Eczema [Recovering/Resolving]
  - Rash [Recovering/Resolving]

NARRATIVE: CASE EVENT DATE: 2020
